FAERS Safety Report 6573653-X (Version None)
Quarter: 2010Q1

REPORT INFORMATION
  Report Type: 
  Country: None (occurrence: None)
  Receive Date: 20100204
  Receipt Date: 20100204
  Transmission Date: 20100710
  Serious: Yes (Other)
  Sender: FDA-Public Use
  Company Number: None

PATIENT
  Age: 49 Year
  Sex: Female
  Weight: 43.5453 kg

DRUGS (1)
  1. FLAGYL [Suspect]
     Indication: SEXUALLY TRANSMITTED DISEASE
     Dosage: 1 2X PER DAY PO
     Route: 048
     Dates: start: 20100120, end: 20100126

REACTIONS (6)
  - ABDOMINAL DISCOMFORT [None]
  - DEAFNESS [None]
  - DECREASED APPETITE [None]
  - DIARRHOEA [None]
  - DYSGEUSIA [None]
  - NERVE INJURY [None]
